FAERS Safety Report 8308500-9 (Version None)
Quarter: 2012Q2

REPORT INFORMATION
  Report Type: 
  Country: None (occurrence: None)
  Receive Date: 20120424
  Receipt Date: 20110518
  Transmission Date: 20120825
  Serious: No
  Sender: FDA-Public Use
  Company Number: US-BRISTOL-MYERS SQUIBB COMPANY-15760721

PATIENT
  Age: 25 Year
  Sex: Male

DRUGS (1)
  1. CARBOPLATIN [Suspect]

REACTIONS (1)
  - NEUTROPENIA [None]
